FAERS Safety Report 5316000-3 (Version None)
Quarter: 2007Q2

REPORT INFORMATION
  Report Type: 
  Country: None (occurrence: None)
  Receive Date: 20070503
  Receipt Date: 20070427
  Transmission Date: 20071010
  Serious: Yes (Disabling)
  Sender: FDA-Public Use
  Company Number: DE-SANOFI-SYNTHELABO-A04200700554

PATIENT
  Sex: Female
  Weight: 54 kg

DRUGS (2)
  1. QUENSYL [Suspect]
     Indication: BORRELIA BURGDORFERI SEROLOGY POSITIVE
     Dosage: UNK
     Route: 048
     Dates: start: 20061108, end: 20061116
  2. CLARITHROMYCIN [Concomitant]
     Indication: BORRELIA BURGDORFERI SEROLOGY POSITIVE
     Dosage: UNK
     Route: 048

REACTIONS (1)
  - BIPOLAR I DISORDER [None]
